FAERS Safety Report 7406780-5 (Version None)
Quarter: 2011Q2

REPORT INFORMATION
  Report Type: 
  Country: None (occurrence: None)
  Receive Date: 20110411
  Receipt Date: 20110401
  Transmission Date: 20111010
  Serious: Yes (Hospitalization)
  Sender: FDA-Public Use
  Company Number: PHHY2011SG27872

PATIENT
  Age: 75 Year
  Sex: Female

DRUGS (3)
  1. FLUOROURACIL [Concomitant]
     Indication: CHEMOTHERAPY
  2. OXALIPLATIN [Suspect]
     Indication: CHEMOTHERAPY
     Dosage: CUMULATIVE OXALIPLATIN DOSE AS 60 MG, UNK
  3. FOLINIC ACID [Concomitant]
     Indication: CHEMOTHERAPY

REACTIONS (3)
  - TOXICITY TO VARIOUS AGENTS [None]
  - DYSPNOEA [None]
  - RHONCHI [None]
